FAERS Safety Report 8804831 (Version 2)
Quarter: 2015Q1

REPORT INFORMATION
  Report Type: Report from Study
  Country: US (occurrence: US)
  Receive Date: 20120924
  Receipt Date: 20150310
  Transmission Date: 20150721
  Serious: Yes (Death)
  Sender: FDA-Public Use
  Company Number: US-ROCHE-1104516

PATIENT
  Sex: Male

DRUGS (31)
  1. DILAUDID [Concomitant]
     Active Substance: HYDROMORPHONE HYDROCHLORIDE
     Route: 065
  2. DEXAMETHASONE. [Concomitant]
     Active Substance: DEXAMETHASONE
     Route: 042
  3. ALOXI [Concomitant]
     Active Substance: PALONOSETRON HYDROCHLORIDE
     Route: 065
  4. LIPITOR [Concomitant]
     Active Substance: ATORVASTATIN CALCIUM
  5. BENADRYL [Concomitant]
     Active Substance: DIPHENHYDRAMINE HYDROCHLORIDE
  6. DILANTIN [Concomitant]
     Active Substance: PHENYTOIN
  7. PROTONIX (UNITED STATES) [Concomitant]
     Route: 065
  8. NORVASC [Concomitant]
     Active Substance: AMLODIPINE BESYLATE
  9. ETOPOSIDE. [Concomitant]
     Active Substance: ETOPOSIDE
  10. NEULASTA [Concomitant]
     Active Substance: PEGFILGRASTIM
     Route: 065
  11. KEPPRA [Concomitant]
     Active Substance: LEVETIRACETAM
     Indication: CONVULSION PROPHYLAXIS
     Route: 065
  12. GLIADEL WAFER [Concomitant]
  13. AVASTIN [Suspect]
     Active Substance: BEVACIZUMAB
     Indication: BRAIN NEOPLASM MALIGNANT
     Route: 042
     Dates: start: 20061004
  14. AVASTIN [Suspect]
     Active Substance: BEVACIZUMAB
     Route: 042
     Dates: start: 20080125
  15. REMERON [Concomitant]
     Active Substance: MIRTAZAPINE
     Route: 065
  16. PLAVIX [Concomitant]
     Active Substance: CLOPIDOGREL BISULFATE
  17. EFFEXOR [Concomitant]
     Active Substance: VENLAFAXINE HYDROCHLORIDE
     Route: 065
  18. DEXAMETHASONE. [Concomitant]
     Active Substance: DEXAMETHASONE
     Route: 065
  19. CIPRO [Concomitant]
     Active Substance: CIPROFLOXACIN HYDROCHLORIDE
  20. TENORETIC [Concomitant]
     Active Substance: ATENOLOL\CHLORTHALIDONE
  21. CARBOPLATIN. [Concomitant]
     Active Substance: CARBOPLATIN
  22. WELCHOL [Concomitant]
     Active Substance: COLESEVELAM HYDROCHLORIDE
     Indication: DIARRHOEA
     Route: 065
  23. TYLENOL #1 (UNITED STATES) [Concomitant]
  24. LUNESTA [Concomitant]
     Active Substance: ESZOPICLONE
     Indication: INSOMNIA
  25. ATROPINE SULPHATE [Concomitant]
     Dosage: IVP
     Route: 065
  26. DIFLUCAN (FLUCONAZOL) [Concomitant]
     Route: 065
  27. IRINOTECAN [Concomitant]
     Active Substance: IRINOTECAN
     Route: 065
  28. TEMODAR [Concomitant]
     Active Substance: TEMOZOLOMIDE
     Route: 065
  29. ZYVOX [Concomitant]
     Active Substance: LINEZOLID
     Indication: OSTEOMYELITIS
  30. LISINOPRIL. [Concomitant]
     Active Substance: LISINOPRIL
     Route: 065
  31. DECADRON [Concomitant]
     Active Substance: DEXAMETHASONE
     Dosage: 4
     Route: 065

REACTIONS (15)
  - Mucosal membrane hyperplasia [Unknown]
  - Visual acuity reduced [Unknown]
  - Asthenia [Unknown]
  - Diarrhoea [Unknown]
  - Anaemia [Unknown]
  - Dystrophic calcification [Unknown]
  - Death [Fatal]
  - Disease progression [Unknown]
  - Constipation [Recovering/Resolving]
  - Protein urine [Unknown]
  - Oedema [Unknown]
  - Fatigue [Unknown]
  - Atelectasis [Unknown]
  - Off label use [Unknown]
  - Contusion [Unknown]
